FAERS Safety Report 6592841-X (Version None)
Quarter: 2010Q1

REPORT INFORMATION
  Report Type: 
  Country: None (occurrence: None)
  Receive Date: 20100212
  Receipt Date: 20100202
  Transmission Date: 20100710
  Serious: Yes (Hospitalization)
  Sender: FDA-Public Use
  Company Number: 006186

PATIENT
  Sex: Female

DRUGS (12)
  1. KEPPRA [Suspect]
     Indication: EPILEPSY
     Dosage: 750 MG, ORAL, 250 MG, ORAL
     Route: 048
     Dates: start: 20091027, end: 20091230
  2. OMEPRAZOLE [Concomitant]
  3. SIMVASTATIN [Concomitant]
  4. AMLODIPINE [Concomitant]
  5. DALTEPARIN SODIUM [Concomitant]
  6. FOLACIN [Concomitant]
  7. OSPOLOT [Concomitant]
  8. FENANTOIN [Concomitant]
  9. LASIX [Concomitant]
  10. TROMBYL [Concomitant]
  11. IMOVANE [Concomitant]
  12. EMCONCOR CHF [Concomitant]

REACTIONS (9)
  - AMNESIA [None]
  - COGNITIVE DISORDER [None]
  - CONDITION AGGRAVATED [None]
  - CONVULSION [None]
  - DAYDREAMING [None]
  - LACUNAR INFARCTION [None]
  - PETIT MAL EPILEPSY [None]
  - REPETITIVE SPEECH [None]
  - TACITURNITY [None]
